FAERS Safety Report 25628344 (Version 2)
Quarter: 2025Q3

REPORT INFORMATION
  Report Type: Report from Study
  Country: US (occurrence: US)
  Receive Date: 20250731
  Receipt Date: 20250806
  Transmission Date: 20251020
  Serious: Yes (Hospitalization)
  Sender: ABBVIE
  Company Number: US-ABBVIE-6390374

PATIENT
  Age: 53 Year
  Sex: Male
  Weight: 72.574 kg

DRUGS (24)
  1. SKYRIZI [Suspect]
     Active Substance: RISANKIZUMAB-RZAA
     Indication: Crohn^s disease
     Dosage: FORM STRENGTH: 360MG. DOSE FORM: SOLUTION FOR INJECTION IN PRE-FILLED INJECTOR
     Route: 058
     Dates: start: 20230320
  2. TRIAMCINOLONE [Concomitant]
     Active Substance: TRIAMCINOLONE
     Indication: Eczema
  3. SINGULAIR [Concomitant]
     Active Substance: MONTELUKAST SODIUM
     Indication: Asthma
  4. ADVAIR HFA [Concomitant]
     Active Substance: FLUTICASONE PROPIONATE\SALMETEROL XINAFOATE
     Indication: Asthma
  5. SIMBRINZA [Concomitant]
     Active Substance: BRIMONIDINE TARTRATE\BRINZOLAMIDE
     Indication: Product used for unknown indication
  6. ADDERALL [Concomitant]
     Active Substance: AMPHETAMINE ASPARTATE\AMPHETAMINE SULFATE\DEXTROAMPHETAMINE SACCHARATE\DEXTROAMPHETAMINE SULFATE
     Indication: Attention deficit hyperactivity disorder
  7. TAMSULOSIN [Concomitant]
     Active Substance: TAMSULOSIN
     Indication: Prostatomegaly
  8. LAMICTAL [Concomitant]
     Active Substance: LAMOTRIGINE
     Indication: Depression
  9. AMLODIPINE [Concomitant]
     Active Substance: AMLODIPINE BESYLATE
     Indication: Hypertension
  10. ALLEGRA [Concomitant]
     Active Substance: FEXOFENADINE HYDROCHLORIDE
     Indication: Seasonal allergy
  11. ABILIFY [Concomitant]
     Active Substance: ARIPIPRAZOLE
     Indication: Depression
  12. POTASSIUM CITRATE [Concomitant]
     Active Substance: POTASSIUM CITRATE
     Indication: Nephropathy
  13. PANTOPRAZOLE [Concomitant]
     Active Substance: PANTOPRAZOLE
     Indication: Gastrooesophageal reflux disease
  14. RHOPRESSA [Concomitant]
     Active Substance: NETARSUDIL MESYLATE
     Indication: Glaucoma
  15. FINASTERIDE [Concomitant]
     Active Substance: FINASTERIDE
     Indication: Prostatomegaly
  16. ACYCLOVIR [Concomitant]
     Active Substance: ACYCLOVIR
     Indication: Herpes ophthalmic
  17. CYCLOSPORINE [Concomitant]
     Active Substance: CYCLOSPORINE
     Indication: Dry eye
  18. XDEMVY [Concomitant]
     Active Substance: LOTILANER
     Indication: Product used for unknown indication
  19. CLOBETASOL [Concomitant]
     Active Substance: CLOBETASOL
     Indication: Eczema
  20. METHOTREXATE [Concomitant]
     Active Substance: METHOTREXATE
     Indication: Crohn^s disease
  21. BUPROPION [Concomitant]
     Active Substance: BUPROPION
     Indication: Depression
  22. AZELASTINE [Concomitant]
     Active Substance: AZELASTINE
     Indication: Seasonal allergy
  23. FOLIC ACID [Concomitant]
     Active Substance: FOLIC ACID
     Indication: Crohn^s disease
  24. SULFASALAZINE [Concomitant]
     Active Substance: SULFASALAZINE
     Indication: Crohn^s disease

REACTIONS (8)
  - Constipation [Recovering/Resolving]
  - Inflammatory marker increased [Recovering/Resolving]
  - Iritis [Not Recovered/Not Resolved]
  - Red cell distribution width increased [Unknown]
  - Fatigue [Recovering/Resolving]
  - Intestinal obstruction [Recovering/Resolving]
  - Visual impairment [Not Recovered/Not Resolved]
  - White blood cell count increased [Recovering/Resolving]

NARRATIVE: CASE EVENT DATE: 20241101
